FAERS Safety Report 16831713 (Version 1)
Quarter: 2019Q4

REPORT INFORMATION
  Report Type: Spontaneous
  Country: US (occurrence: US)
  Receive Date: 20190919
  Receipt Date: 20190919
  Transmission Date: 20200122
  Serious: Yes (Disabling)
  Sender: FDA-Public Use
  Company Number: None

PATIENT
  Age: 37 Year
  Sex: Female
  Weight: 42.3 kg

DRUGS (1)
  1. DOTAREM [Suspect]
     Active Substance: GADOTERATE MEGLUMINE
     Indication: MAGNETIC RESONANCE IMAGING
     Dosage: ?          QUANTITY:1 INJECTION(S);?
     Route: 042
     Dates: start: 20190524, end: 20190524

REACTIONS (24)
  - Joint swelling [None]
  - Ear discomfort [None]
  - Arthralgia [None]
  - Contrast media toxicity [None]
  - Burning sensation [None]
  - Vasodilatation [None]
  - Paraesthesia [None]
  - Headache [None]
  - Fatigue [None]
  - Bone pain [None]
  - Pain in extremity [None]
  - Spider vein [None]
  - Tinnitus [None]
  - Oedema [None]
  - Dysphagia [None]
  - Pruritus [None]
  - Muscle twitching [None]
  - Hypoaesthesia [None]
  - Peripheral swelling [None]
  - Rash [None]
  - Pain [None]
  - Gadolinium deposition disease [None]
  - Vertigo [None]
  - Myalgia [None]

NARRATIVE: CASE EVENT DATE: 20190524
